FAERS Safety Report 7644295-X (Version None)
Quarter: 2011Q3

REPORT INFORMATION
  Report Type: 
  Country: None (occurrence: None)
  Receive Date: 20110729
  Receipt Date: 20110720
  Transmission Date: 20111222
  Serious: Yes (Other)
  Sender: FDA-Public Use
  Company Number: PHHY2011US65506

PATIENT
  Sex: Female

DRUGS (5)
  1. SIMVASTATIN [Concomitant]
     Dosage: UNK UKN, UNK
  2. VITAMIN D [Concomitant]
     Dosage: 5000 MG, QW
  3. DOXEPIN [Concomitant]
     Dosage: 10 MG, PRN
  4. RECLAST [Suspect]
     Dosage: UNK UKN, UNK
     Route: 042
     Dates: start: 20100726
  5. CALCIUM ACETATE [Concomitant]
     Dosage: 600 MG, BID

REACTIONS (4)
  - EYE HAEMORRHAGE [None]
  - EYE DISORDER [None]
  - VISUAL IMPAIRMENT [None]
  - VISION BLURRED [None]
